FAERS Safety Report 5887832-8 (Version None)
Quarter: 2008Q3

REPORT INFORMATION
  Report Type: 
  Country: None (occurrence: None)
  Receive Date: 20080917
  Receipt Date: 20080917
  Transmission Date: 20090109
  Serious: No
  Sender: FDA-Public Use
  Company Number: None

PATIENT
  Age: 53 Year
  Sex: Male

DRUGS (2)
  1. AZITHROMYCIN [Suspect]
     Indication: UPPER RESPIRATORY TRACT INFECTION
     Dosage: 500 MG EVERYDAY PO
     Route: 048
     Dates: start: 20080610, end: 20080611
  2. VARDENAFIL [Suspect]
     Dosage: 10 MG PRN PO
     Route: 048
     Dates: start: 20080611, end: 20080611

REACTIONS (8)
  - CHILLS [None]
  - COUGH [None]
  - DIARRHOEA [None]
  - MALAISE [None]
  - NAUSEA [None]
  - PALPITATIONS [None]
  - VOMITING [None]
  - WHEEZING [None]
